FAERS Safety Report 18311274 (Version 4)
Quarter: 2020Q4

REPORT INFORMATION
  Report Type: Spontaneous
  Country: US (occurrence: US)
  Receive Date: 20200925
  Receipt Date: 20201106
  Transmission Date: 20210113
  Serious: Yes (Hospitalization, Other)
  Sender: FDA-Public Use
  Company Number: US-ASTRAZENECA-2020SF21550

PATIENT
  Sex: Female
  Weight: 53.1 kg

DRUGS (2)
  1. SYMBICORT [Suspect]
     Active Substance: BUDESONIDE\FORMOTEROL FUMARATE DIHYDRATE
     Indication: CHRONIC OBSTRUCTIVE PULMONARY DISEASE
     Dosage: 160/4.5 MCG, 2 PUFFS BID (2 PUFFS IN THE MORNING/ 2 PUFFS IN THE NIGHT)
     Route: 055
  2. OXYGEN. [Concomitant]
     Active Substance: OXYGEN
     Indication: CHRONIC OBSTRUCTIVE PULMONARY DISEASE
     Route: 055

REACTIONS (7)
  - Brain hypoxia [Unknown]
  - Drug ineffective [Unknown]
  - Blood iron decreased [Unknown]
  - Visual impairment [Unknown]
  - Device malfunction [Unknown]
  - Product packaging quantity issue [Unknown]
  - Confusional state [Unknown]
